FAERS Safety Report 17436567 (Version 1)
Quarter: 2020Q1

REPORT INFORMATION
  Report Type: Spontaneous
  Country: DK (occurrence: DK)
  Receive Date: 20200219
  Receipt Date: 20200219
  Transmission Date: 20200409
  Serious: Yes (Disabling)
  Sender: FDA-Public Use
  Company Number: NVSC2020DK040267

PATIENT
  Age: 72 Year
  Sex: Female

DRUGS (5)
  1. GENTAMICIN. [Suspect]
     Active Substance: GENTAMICIN
     Indication: UROSEPSIS
     Dosage: FORM, STYRKE OG DOSIS ER UKENDT, MEN OPLYST AT DET BLEV GIVET I KORREKT DOSIS
     Route: 042
     Dates: start: 20181125, end: 20181128
  2. AMPICILLIN [Concomitant]
     Active Substance: AMPICILLIN
     Indication: UROSEPSIS
     Dosage: FORM, STYRKE OG DOSIS ER UKENDT
     Route: 042
     Dates: start: 20181125, end: 20181128
  3. PONDOCILLIN [Concomitant]
     Active Substance: PIVAMPICILLIN HYDROCHLORIDE
     Indication: UROSEPSIS
     Dosage: STYRKE OG DOSIS UKENDT
     Route: 048
     Dates: start: 20181128
  4. FLUCONAZOLE. [Concomitant]
     Active Substance: FLUCONAZOLE
     Indication: ORAL FUNGAL INFECTION
     Dosage: STYRKE OG DOSIS ER UKENDT
     Route: 065
     Dates: start: 20181128
  5. METRONIDAZOLE. [Concomitant]
     Active Substance: METRONIDAZOLE
     Indication: UROSEPSIS
     Dosage: STYRKE OG DOSIS ER UKENDT
     Route: 042
     Dates: start: 20181127, end: 20181128

REACTIONS (5)
  - Balance disorder [Not Recovered/Not Resolved]
  - Vestibular disorder [Not Recovered/Not Resolved]
  - Dizziness [Not Recovered/Not Resolved]
  - Visual impairment [Not Recovered/Not Resolved]
  - Nausea [Unknown]

NARRATIVE: CASE EVENT DATE: 201812
